FAERS Safety Report 10189744 (Version 1)
Quarter: 2014Q2

REPORT INFORMATION
  Report Type: Spontaneous
  Country: US (occurrence: US)
  Receive Date: 20140522
  Receipt Date: 20140522
  Transmission Date: 20141212
  Serious: Yes (Other)
  Sender: FDA-Public Use
  Company Number: US-SA-2013SA107868

PATIENT
  Sex: 0

DRUGS (2)
  1. LANTUS [Suspect]
     Route: 051
  2. LANTUS [Suspect]
     Dosage: DOSE:30 UNIT(S)
     Route: 051

REACTIONS (2)
  - Peripheral swelling [Recovering/Resolving]
  - Gait disturbance [Recovering/Resolving]
